FAERS Safety Report 24367116 (Version 1)
Quarter: 2024Q3

REPORT INFORMATION
  Report Type: Spontaneous
  Country: CA (occurrence: CA)
  Receive Date: 20240926
  Receipt Date: 20240926
  Transmission Date: 20241016
  Serious: Yes (Other)
  Sender: FRESENIUS KABI
  Company Number: CA-FreseniusKabi-FK202414267

PATIENT
  Age: 41 Year
  Sex: Male

DRUGS (2)
  1. VANCOMYCIN [Suspect]
     Active Substance: VANCOMYCIN
     Indication: Eye infection
     Dosage: FORM OF ADMIN: NOT SPECIFIED ?ROUTE OF ADMIN: OTHER
  2. CEFTRIAXONE [Suspect]
     Active Substance: CEFTRIAXONE\CEFTRIAXONE SODIUM
     Indication: Eye infection
     Dosage: FORM OF ADMIN: POWDER FOR SOLUTION INTRAMUSCULAR

REACTIONS (3)
  - Pain [Unknown]
  - Pruritus [Unknown]
  - Rash [Unknown]
